FAERS Safety Report 11270730 (Version 1)
Quarter: 2015Q3

REPORT INFORMATION
  Report Type: Spontaneous
  Country: FR (occurrence: FR)
  Receive Date: 20150714
  Receipt Date: 20150714
  Transmission Date: 20151125
  Serious: Yes (Hospitalization)
  Sender: FDA-Public Use
  Company Number: FR-JNJFOC-20150708036

PATIENT
  Age: 56 Year
  Sex: Male

DRUGS (4)
  1. REMICADE [Suspect]
     Active Substance: INFLIXIMAB
     Indication: VOGT-KOYANAGI-HARADA SYNDROME
     Route: 042
     Dates: start: 20150226
  2. CORTANCYL [Suspect]
     Active Substance: PREDNISONE
     Indication: VOGT-KOYANAGI-HARADA SYNDROME
     Route: 048
     Dates: start: 2007
  3. REMICADE [Suspect]
     Active Substance: INFLIXIMAB
     Indication: VOGT-KOYANAGI-HARADA SYNDROME
     Route: 042
     Dates: start: 20150130
  4. REMICADE [Suspect]
     Active Substance: INFLIXIMAB
     Indication: VOGT-KOYANAGI-HARADA SYNDROME
     Route: 042
     Dates: start: 20150116

REACTIONS (3)
  - Inappropriate schedule of drug administration [Unknown]
  - Product use issue [Unknown]
  - Pneumocystis jirovecii pneumonia [Recovering/Resolving]

NARRATIVE: CASE EVENT DATE: 20150116
